FAERS Safety Report 23131514 (Version 3)
Quarter: 2023Q4

REPORT INFORMATION
  Report Type: Report from Study
  Country: GB (occurrence: GB)
  Receive Date: 20231031
  Receipt Date: 20231121
  Transmission Date: 20240110
  Serious: Yes (Hospitalization)
  Sender: FDA-Public Use
  Company Number: GB-Eisai Medical Research-EC-2023-145631

PATIENT
  Age: 78 Year
  Sex: Female
  Weight: 50.55 kg

DRUGS (15)
  1. LENVATINIB [Suspect]
     Active Substance: LENVATINIB
     Indication: Squamous cell carcinoma of head and neck
     Route: 048
     Dates: start: 20230519, end: 20230608
  2. LENVATINIB [Suspect]
     Active Substance: LENVATINIB
     Dosage: GASTROENTERAL USE
     Dates: start: 20230614, end: 20230723
  3. LENVATINIB [Suspect]
     Active Substance: LENVATINIB
     Dosage: GASTROENTERAL USE
     Route: 048
     Dates: start: 20230728, end: 20230808
  4. LENVATINIB [Suspect]
     Active Substance: LENVATINIB
     Dosage: GASTROENTERAL USE
     Route: 048
     Dates: start: 20230809, end: 20230809
  5. PEMBROLIZUMAB [Suspect]
     Active Substance: PEMBROLIZUMAB
     Indication: Squamous cell carcinoma of head and neck
     Route: 041
     Dates: start: 20230519, end: 20230707
  6. PEMBROLIZUMAB [Suspect]
     Active Substance: PEMBROLIZUMAB
     Route: 041
     Dates: start: 20230728, end: 20230728
  7. MORPHINE SULFATE [Concomitant]
     Active Substance: MORPHINE SULFATE
     Dates: start: 20230507
  8. ACETAMINOPHEN [Concomitant]
     Active Substance: ACETAMINOPHEN
     Dates: start: 201807
  9. MORPHINE [Concomitant]
     Active Substance: MORPHINE
     Dates: start: 202107
  10. RAMIPRIL [Concomitant]
     Active Substance: RAMIPRIL
     Dates: start: 20230707, end: 20230809
  11. POTASSIUM BICARBONATE\POTASSIUM CHLORIDE [Concomitant]
     Active Substance: POTASSIUM BICARBONATE\POTASSIUM CHLORIDE
     Dates: start: 20230707, end: 20230710
  12. CLARITHROMYCIN [Concomitant]
     Active Substance: CLARITHROMYCIN
     Dates: start: 20230717, end: 20230724
  13. OXETHAZINE [Concomitant]
     Dates: start: 20230606, end: 202309
  14. SENNA [Concomitant]
     Active Substance: SENNA LEAF\SENNOSIDES\SENNOSIDES A AND B
     Dates: start: 20230626, end: 20230805
  15. POLYETHYLENE GLYCOL\POTASSIUM CHLORIDE\SODIUM BICARBONATE\SODIUM CHLOR [Concomitant]
     Active Substance: POLYETHYLENE GLYCOL\POTASSIUM CHLORIDE\SODIUM BICARBONATE\SODIUM CHLORIDE
     Dates: start: 20230608

REACTIONS (4)
  - Lower respiratory tract infection [Recovered/Resolved]
  - Vomiting [Recovered/Resolved]
  - Pneumonia [Recovered/Resolved]
  - Ejection fraction decreased [Recovering/Resolving]

NARRATIVE: CASE EVENT DATE: 20230717
